FAERS Safety Report 18586660 (Version 1)
Quarter: 2020Q4

REPORT INFORMATION
  Report Type: Spontaneous
  Country: JP (occurrence: JP)
  Receive Date: 20201207
  Receipt Date: 20201207
  Transmission Date: 20210114
  Serious: No
  Sender: FDA-Public Use
  Company Number: JP-LUPIN PHARMACEUTICALS INC.-2020-09643

PATIENT
  Age: 35 Year
  Sex: Female

DRUGS (3)
  1. METHYLDOPA. [Suspect]
     Active Substance: METHYLDOPA
     Indication: SUPERIMPOSED PRE-ECLAMPSIA
     Dosage: 250 MILLIGRAM, QD
     Route: 065
  2. AMLODIPINE [Suspect]
     Active Substance: AMLODIPINE BESYLATE
     Indication: ESSENTIAL HYPERTENSION
     Dosage: 20 MILLIGRAM, QD
     Route: 065
  3. NICARDIPINE [Suspect]
     Active Substance: NICARDIPINE
     Indication: SUPERIMPOSED PRE-ECLAMPSIA
     Dosage: 0.2 MICROG/KG/MIN
     Route: 065

REACTIONS (1)
  - Maternal exposure during pregnancy [Unknown]
